FAERS Safety Report 15569345 (Version 1)
Quarter: 2018Q4

REPORT INFORMATION
  Report Type: Spontaneous
  Country: US (occurrence: US)
  Receive Date: 20181030
  Receipt Date: 20181030
  Transmission Date: 20190205
  Serious: Yes (Hospitalization)
  Sender: FDA-Public Use
  Company Number: None

PATIENT
  Age: 61 Year

DRUGS (1)
  1. NIVOLUMAB [Suspect]
     Active Substance: NIVOLUMAB
     Indication: SQUAMOUS CELL CARCINOMA OF HEAD AND NECK
     Dosage: ?          OTHER FREQUENCY:EVERY 2 WEEKS;?
     Route: 042
     Dates: start: 20180104, end: 20180219

REACTIONS (6)
  - Demyelinating polyneuropathy [None]
  - Diplopia [None]
  - Cranial nerve disorder [None]
  - Eyelid ptosis [None]
  - Ophthalmoplegia [None]
  - Pupils unequal [None]

NARRATIVE: CASE EVENT DATE: 20180301
